FAERS Safety Report 6720959-7 (Version None)
Quarter: 2010Q2

REPORT INFORMATION
  Report Type: 
  Country: None (occurrence: None)
  Receive Date: 20100512
  Receipt Date: 20100426
  Transmission Date: 20101027
  Serious: Yes (Hospitalization, Other)
  Sender: FDA-Public Use
  Company Number: US-BAYER-200937499NA

PATIENT
  Age: 25 Year
  Sex: Female

DRUGS (1)
  1. YASMIN [Suspect]
     Indication: ACNE
     Route: 048

REACTIONS (4)
  - DEEP VEIN THROMBOSIS [None]
  - HIGH RISK PREGNANCY [None]
  - PULMONARY EMBOLISM [None]
  - THROMBOSIS [None]
